FAERS Safety Report 9122652 (Version 2)
Quarter: 2013Q1

REPORT INFORMATION
  Report Type: Spontaneous
  Country: US (occurrence: None)
  Receive Date: 20130131
  Receipt Date: 20130206
  Transmission Date: 20140127
  Serious: Yes (Other)
  Sender: FDA-Public Use
  Company Number: JPI-P-029278

PATIENT
  Age: 42 Year
  Sex: Male

DRUGS (9)
  1. XYREM (500 MILLIGRAM/MILLILITERS, SOLUTION) (SODIUM OXYBATE) [Suspect]
     Indication: NARCOLEPSY
     Route: 048
     Dates: start: 20090819
  2. ARMOUR THYROID [Concomitant]
  3. METOPROLOL [Concomitant]
  4. VALSARTAN [Concomitant]
  5. OMEGA-3 ACID ETHYL ESTERS [Concomitant]
  6. PAROXETINE [Concomitant]
  7. SOMATROPIN [Concomitant]
  8. TADALAFIL [Concomitant]
  9. TESTOSTERONE CYPIONATE [Concomitant]

REACTIONS (1)
  - Shoulder operation [None]
